FAERS Safety Report 20344477 (Version 2)
Quarter: 2022Q1

REPORT INFORMATION
  Report Type: Spontaneous
  Country: JP (occurrence: JP)
  Receive Date: 20220118
  Receipt Date: 20220208
  Transmission Date: 20220423
  Serious: No
  Sender: FDA-Public Use
  Company Number: JP-GSKNCCC-Case-01392683_AE-53600

PATIENT
  Age: 34 Year
  Sex: Female
  Weight: 53 kg

DRUGS (7)
  1. SOTROVIMAB [Suspect]
     Active Substance: SOTROVIMAB
     Dosage: 500 MG/100 ML/30 MIN
     Dates: start: 20220109, end: 20220109
  2. BUDEFORU [Concomitant]
     Dosage: UNK, BID
  3. EPINASTINE HYDROCHLORIDE TABLETS [Concomitant]
     Dosage: 20 MG, QD, AFTER DINNER
  4. LEVOCABASTINE HYDROCHLORIDE OPHTHALMIC SOLUTION [Concomitant]
     Dosage: UNK, BID
  5. VOALLA OINTMENT [Concomitant]
     Dosage: UNK
  6. PETROLATUM [Concomitant]
     Active Substance: PETROLATUM
     Dosage: UNK
  7. SODIUM GUALENATE MONOHYDRATE [Concomitant]
     Active Substance: SODIUM GUALENATE MONOHYDRATE
     Dosage: UNK

REACTIONS (4)
  - Injection site pain [Recovering/Resolving]
  - Feeling abnormal [Recovering/Resolving]
  - Dizziness [Recovering/Resolving]
  - Infusion related reaction [Recovering/Resolving]

NARRATIVE: CASE EVENT DATE: 20220109
